FAERS Safety Report 20045927 (Version 2)
Quarter: 2021Q4

REPORT INFORMATION
  Report Type: Spontaneous
  Country: MA (occurrence: MA)
  Receive Date: 20211108
  Receipt Date: 20211219
  Transmission Date: 20220303
  Serious: Yes (Other)
  Sender: FDA-Public Use
  Company Number: MA-PFIZER INC-202101447311

PATIENT

DRUGS (1)
  1. ENBREL [Suspect]
     Active Substance: ETANERCEPT
     Indication: Product used for unknown indication
     Dosage: 25 MG
     Route: 065

REACTIONS (2)
  - Hepatic cytolysis [Not Recovered/Not Resolved]
  - Transaminases increased [Not Recovered/Not Resolved]
